FAERS Safety Report 10660435 (Version 2)
Quarter: 2014Q4

REPORT INFORMATION
  Report Type: Spontaneous
  Country: US (occurrence: US)
  Receive Date: 20141217
  Receipt Date: 20141224
  Transmission Date: 20150529
  Serious: No
  Sender: FDA-Public Use
  Company Number: US-GLAXOSMITHKLINE-A1085830A

PATIENT
  Sex: Male
  Weight: 98.8 kg

DRUGS (1)
  1. VOTRIENT [Suspect]
     Active Substance: PAZOPANIB HYDROCHLORIDE
     Indication: RENAL CANCER
     Dosage: 200 MG TABLETS
     Route: 065
     Dates: start: 20140220

REACTIONS (3)
  - Disease progression [Unknown]
  - Fatigue [Unknown]
  - Diarrhoea [Unknown]
